FAERS Safety Report 4603737-4 (Version None)
Quarter: 2005Q1

REPORT INFORMATION
  Report Type: 
  Country: None (occurrence: None)
  Receive Date: 20050308
  Receipt Date: 20050308
  Transmission Date: 20050727
  Serious: Yes (Hospitalization)
  Sender: FDA-Public Use
  Company Number: None

PATIENT
  Age: 66 Year
  Sex: Male
  Weight: 85.4 kg

DRUGS (1)
  1. CISPLATIN [Suspect]
     Dosage: 75 MG/M2

REACTIONS (1)
  - RENAL FAILURE ACUTE [None]
